FAERS Safety Report 13351671 (Version 1)
Quarter: 2017Q1

REPORT INFORMATION
  Report Type: Spontaneous
  Country: US (occurrence: US)
  Receive Date: 20170320
  Receipt Date: 20170320
  Transmission Date: 20170429
  Serious: Yes (Hospitalization)
  Sender: FDA-Public Use
  Company Number: US-BAYER-2017-052491

PATIENT

DRUGS (2)
  1. APIXABAN [Concomitant]
     Active Substance: APIXABAN
     Dosage: UNK
  2. BAYER ASPIRIN [Suspect]
     Active Substance: ASPIRIN
     Dosage: UNK

REACTIONS (1)
  - Small intestinal haemorrhage [Unknown]
